FAERS Safety Report 16094563 (Version 1)
Quarter: 2019Q1

REPORT INFORMATION
  Report Type: Spontaneous
  Country: US (occurrence: US)
  Receive Date: 20190216
  Receipt Date: 20190216
  Transmission Date: 20190418
  Serious: No
  Sender: FDA-Public Use
  Company Number: None

PATIENT
  Age: 30 Year
  Sex: Female

DRUGS (1)
  1. FONDAPARINUX SOL 7.5MG/.6ML [Suspect]
     Active Substance: FONDAPARINUX

REACTIONS (1)
  - Hypocoagulable state [None]

NARRATIVE: CASE EVENT DATE: 20190216
